FAERS Safety Report 5167330-X (Version None)
Quarter: 2006Q4

REPORT INFORMATION
  Report Type: 
  Country: None (occurrence: None)
  Receive Date: 20061130
  Receipt Date: 20061120
  Transmission Date: 20070319
  Serious: Yes (Hospitalization)
  Sender: FDA-Public Use
  Company Number: 231618

PATIENT
  Age: 76 Year
  Sex: Male

DRUGS (7)
  1. AVASTIN [Suspect]
     Indication: NON-SMALL CELL LUNG CANCER METASTATIC
     Dosage: 1220 MG, Q3W
  2. TARCEVA [Suspect]
     Indication: NON-SMALL CELL LUNG CANCER METASTATIC
     Dosage: 100 MG, QD
     Dates: start: 20050101, end: 20061016
  3. IMODIUM [Concomitant]
  4. ZOFRAN [Concomitant]
  5. REGLAN [Concomitant]
  6. CLARTIN (LORATADINE) [Concomitant]
  7. NEXIUM [Concomitant]

REACTIONS (1)
  - DIVERTICULITIS [None]
